FAERS Safety Report 9596767 (Version 1)
Quarter: 2013Q4

REPORT INFORMATION
  Report Type: Spontaneous
  Country: IT (occurrence: IT)
  Receive Date: 20131004
  Receipt Date: 20131004
  Transmission Date: 20140711
  Serious: Yes (Hospitalization)
  Sender: FDA-Public Use
  Company Number: PHHY2013IT110557

PATIENT
  Age: 67 Year
  Sex: Female

DRUGS (2)
  1. XANAX [Suspect]
     Indication: SELF INJURIOUS BEHAVIOUR
     Dosage: 17 POSOLOGIC UNIT, TOT
     Route: 048
     Dates: end: 20130824
  2. TAREG [Suspect]
     Indication: SELF INJURIOUS BEHAVIOUR
     Dosage: 12 POSOLOGIC UNIT, TOT
     Route: 048
     Dates: end: 20130824

REACTIONS (3)
  - Loss of consciousness [Recovering/Resolving]
  - Sopor [Recovering/Resolving]
  - Drug abuse [Recovering/Resolving]
